FAERS Safety Report 9871889 (Version 2)
Quarter: 2014Q1

REPORT INFORMATION
  Report Type: Report from Study
  Country: NO (occurrence: NO)
  Receive Date: 20140205
  Receipt Date: 20140205
  Transmission Date: 20141002
  Serious: Yes (Death, Hospitalization, Other)
  Sender: FDA-Public Use
  Company Number: NO-B.I. PHARMACEUTICALS,INC./RIDGEFIELD-2013-SW-00462NO

PATIENT
  Age: 42 Year
  Sex: Female
  Weight: 55 kg

DRUGS (4)
  1. AFATINIB [Suspect]
     Indication: LUNG NEOPLASM MALIGNANT
     Dosage: 40 MG
     Route: 048
     Dates: start: 20130821, end: 20130917
  2. OXYCODONE [Concomitant]
     Indication: PAIN
     Dosage: 40 MG
     Route: 048
     Dates: start: 20130212
  3. PANTOPRAZOL [Concomitant]
     Indication: DYSPEPSIA
     Dosage: 40 MG
     Route: 048
     Dates: start: 20130701
  4. METYLPREDNISOLON [Concomitant]
     Indication: METASTASES TO LIVER
     Dosage: 32 MG
     Route: 048
     Dates: start: 20130807

REACTIONS (4)
  - Malignant neoplasm progression [Fatal]
  - Rash [Not Recovered/Not Resolved]
  - Rash [Unknown]
  - Infected skin ulcer [Unknown]
